FAERS Safety Report 9720395 (Version 7)
Quarter: 2014Q2

REPORT INFORMATION
  Report Type: Report from Study
  Country: AU (occurrence: AU)
  Receive Date: 20131129
  Receipt Date: 20140422
  Transmission Date: 20141212
  Serious: Yes (Hospitalization)
  Sender: FDA-Public Use
  Company Number: AU-ROCHE-1304755

PATIENT
  Age: 71 Year
  Sex: Female
  Weight: 88.9 kg

DRUGS (9)
  1. TRASTUZUMAB EMTANSINE [Suspect]
     Indication: BREAST CANCER METASTATIC
     Dosage: DATE OF LAST DOSE PRIOR TO SAE ONSET: 16/OCT/2013.
     Route: 042
     Dates: start: 20130521, end: 20131112
  2. CLEXANE [Suspect]
     Indication: PULMONARY EMBOLISM
     Route: 065
     Dates: start: 20110316
  3. VENLAFAXINE HYDROCHLORIDE [Concomitant]
     Route: 065
     Dates: start: 2009
  4. OSTELIN (AUSTRALIA) [Concomitant]
     Route: 065
     Dates: start: 20120315
  5. PARACETAMOL [Concomitant]
     Route: 065
     Dates: start: 20120415
  6. PANTOPRAZOLE [Concomitant]
     Route: 065
     Dates: start: 20121015
  7. ZOMETA [Concomitant]
     Route: 065
     Dates: start: 20091028
  8. MELOXICAM [Concomitant]
     Route: 065
     Dates: start: 20130830
  9. SALBUTAMOL [Concomitant]
     Dosage: DAILY DOSE = 8 PUFF.
     Route: 065
     Dates: start: 20130830

REACTIONS (1)
  - Ischaemic stroke [Recovered/Resolved with Sequelae]
